FAERS Safety Report 9890480 (Version 1)
Quarter: 2014Q1

REPORT INFORMATION
  Report Type: Spontaneous
  Country: US (occurrence: None)
  Receive Date: 20140211
  Receipt Date: 20140211
  Transmission Date: 20141002
  Serious: Yes (Hospitalization)
  Sender: FDA-Public Use
  Company Number: None

PATIENT
  Age: 58 Year
  Sex: Female

DRUGS (11)
  1. DEPAKOTE [Suspect]
     Indication: CONVULSION
     Dosage: 3 PILLS BID ORAL
     Route: 048
  2. ADVAIR [Concomitant]
  3. ALBUTEROL [Concomitant]
  4. METOPROLOL [Concomitant]
  5. HCTZ [Concomitant]
  6. NEXIUM [Concomitant]
  7. KCL [Concomitant]
  8. DETROL LA [Concomitant]
  9. ASA [Concomitant]
  10. LISINOPRIL [Concomitant]
  11. ROSUVASTATIN [Concomitant]

REACTIONS (4)
  - Somnolence [None]
  - Hypophagia [None]
  - Dehydration [None]
  - Renal failure acute [None]
